FAERS Safety Report 4527037-6 (Version None)
Quarter: 2004Q4

REPORT INFORMATION
  Report Type: 
  Country: None (occurrence: None)
  Receive Date: 20041213
  Receipt Date: 20041201
  Transmission Date: 20050328
  Serious: Yes (Other)
  Sender: FDA-Public Use
  Company Number: 2004100475

PATIENT
  Sex: 0

DRUGS (1)
  1. NORVASC [Suspect]
     Indication: ILL-DEFINED DISORDER
     Dosage: ORAL
     Route: 048

REACTIONS (4)
  - DYSGEUSIA [None]
  - STOMATITIS [None]
  - TOOTHACHE [None]
  - VOCAL CORD PARALYSIS [None]
